FAERS Safety Report 14140389 (Version 1)
Quarter: 2017Q4

REPORT INFORMATION
  Report Type: Spontaneous
  Country: PL (occurrence: PL)
  Receive Date: 20171030
  Receipt Date: 20171030
  Transmission Date: 20180321
  Serious: Yes (Hospitalization, Disabling, Other)
  Sender: FDA-Public Use
  Company Number: PL-ROCHE-2014052

PATIENT
  Age: 44 Year
  Sex: Female
  Weight: 55 kg

DRUGS (9)
  1. PERTUZUMAB. [Suspect]
     Active Substance: PERTUZUMAB
     Indication: BREAST CANCER STAGE II
     Dosage: 6 COURSES?840 MG - FIRST DOSE (LOADING DOSE) 60 MINUTES, NEXT DOSES 420 MG, 30-60 MINUTES
     Route: 042
     Dates: start: 201705, end: 201707
  2. ADRIAMYCIN [Suspect]
     Active Substance: DOXORUBICIN HYDROCHLORIDE
     Indication: BREAST CANCER STAGE II
     Dosage: 4 CYCLES
     Route: 065
     Dates: start: 201006, end: 201011
  3. DOCETAXEL. [Suspect]
     Active Substance: DOCETAXEL
     Indication: BREAST CANCER STAGE II
     Dosage: 6 COURSES?75 MG/M2 BODY SURFACE
     Route: 065
     Dates: start: 201705, end: 201707
  4. LETROZOLE. [Concomitant]
     Active Substance: LETROZOLE
     Indication: BREAST CANCER STAGE II
  5. GOSERELIN [Concomitant]
     Active Substance: GOSERELIN
     Indication: BREAST CANCER STAGE II
  6. CYCLOPHOSPHAMIDE. [Suspect]
     Active Substance: CYCLOPHOSPHAMIDE
     Indication: BREAST CANCER STAGE II
     Dosage: 4 CYCLES
     Route: 065
     Dates: start: 201006, end: 201011
  7. PACLITAXEL. [Suspect]
     Active Substance: PACLITAXEL
     Indication: BREAST CANCER STAGE II
     Dosage: 4 CYCLES
     Route: 065
     Dates: start: 201006, end: 201011
  8. TRASTUZUMAB. [Suspect]
     Active Substance: TRASTUZUMAB
     Indication: BREAST CANCER STAGE II
     Dosage: LAST DOSE OF TRASTUZUMAB: JUL/2011?8 MG/KG BODY WEIGHT - FIRST DOSE (LOADING DOSE), NEXT DOSES 6 MG/
     Route: 042
     Dates: start: 201006, end: 201011
  9. TRASTUZUMAB. [Suspect]
     Active Substance: TRASTUZUMAB
     Dosage: 6 COURSES
     Route: 042
     Dates: start: 201705, end: 201707

REACTIONS (7)
  - Epilepsy [Unknown]
  - Cough [Recovered/Resolved]
  - Pyrexia [Recovered/Resolved]
  - Febrile neutropenia [Recovered/Resolved]
  - Stomatitis [Recovered/Resolved]
  - Neutropenia [Recovered/Resolved]
  - Dyspnoea exertional [Recovering/Resolving]

NARRATIVE: CASE EVENT DATE: 201611
